FAERS Safety Report 18357072 (Version 1)
Quarter: 2020Q4

REPORT INFORMATION
  Report Type: Spontaneous
  Country: FR (occurrence: FR)
  Receive Date: 20201007
  Receipt Date: 20201007
  Transmission Date: 20210114
  Serious: Yes (Life-Threatening)
  Sender: FDA-Public Use
  Company Number: FR-MYLANLABS-2020M1084634

PATIENT
  Age: 46 Year
  Sex: Female

DRUGS (4)
  1. ZOPHREN                            /00955302/ [Suspect]
     Active Substance: ONDANSETRON
     Indication: VOMITING
     Dosage: UNK
     Route: 042
     Dates: start: 20200822
  2. CISPLATIN. [Suspect]
     Active Substance: CISPLATIN
     Indication: OROPHARYNGEAL SQUAMOUS CELL CARCINOMA
     Dosage: 120 MILLIGRAM, CYCLE
     Route: 041
     Dates: start: 20200820, end: 20200820
  3. FLUOROURACILE [Suspect]
     Active Substance: FLUOROURACIL
     Indication: OROPHARYNGEAL SQUAMOUS CELL CARCINOMA
     Dosage: 5000 MILLIGRAM, CYCLE
     Route: 041
     Dates: start: 20200820, end: 20200825
  4. DOCETAXEL. [Suspect]
     Active Substance: DOCETAXEL
     Indication: OROPHARYNGEAL SQUAMOUS CELL CARCINOMA
     Dosage: 120 MILLIGRAM, CYCLE
     Route: 041
     Dates: start: 20200820, end: 20200820

REACTIONS (6)
  - Hot flush [Recovered/Resolved]
  - Hyperhidrosis [Recovered/Resolved]
  - Blood thyroid stimulating hormone decreased [Not Recovered/Not Resolved]
  - Malaise [Recovered/Resolved]
  - Sinus tachycardia [Not Recovered/Not Resolved]
  - Cardio-respiratory arrest [Recovered/Resolved]

NARRATIVE: CASE EVENT DATE: 20200823
